FAERS Safety Report 21845284 (Version 1)
Quarter: 2023Q1

REPORT INFORMATION
  Report Type: Other
  Country: JP (occurrence: JP)
  Receive Date: 20230110
  Receipt Date: 20230110
  Transmission Date: 20230417
  Serious: Yes (Other)
  Sender: FDA-Public Use
  Company Number: JP-CHUGAI-2023000023

PATIENT
  Sex: Female

DRUGS (1)
  1. ACTEMRA [Suspect]
     Active Substance: TOCILIZUMAB
     Indication: Product used for unknown indication
     Route: 058

REACTIONS (2)
  - COVID-19 [Recovering/Resolving]
  - Product dose omission issue [Unknown]

NARRATIVE: CASE EVENT DATE: 20221201
